FAERS Safety Report 6328619-1 (Version None)
Quarter: 2009Q3

REPORT INFORMATION
  Report Type: 
  Country: None (occurrence: None)
  Receive Date: 20090826
  Receipt Date: 20090604
  Transmission Date: 20100115
  Serious: Yes (Hospitalization)
  Sender: FDA-Public Use
  Company Number: US-JNJCH-2009015514

PATIENT
  Age: 11 Year
  Sex: Male
  Weight: 24.5 kg

DRUGS (3)
  1. ZYRTEC [Suspect]
     Indication: SEASONAL ALLERGY
     Dosage: TEXT:ONE TABLET ONCE DAILY
     Route: 048
     Dates: start: 20090401, end: 20090604
  2. ZOLOFT [Concomitant]
     Indication: DEPRESSION
     Dosage: TEXT:25 MG, ONCE DAILY
     Route: 065
  3. RISPERDAL [Concomitant]
     Indication: DEPRESSION
     Dosage: TEXT:0.25 MG, ONCE DAILY
     Route: 065

REACTIONS (5)
  - ABNORMAL BEHAVIOUR [None]
  - CONDITION AGGRAVATED [None]
  - OFF LABEL USE [None]
  - THERAPEUTIC RESPONSE UNEXPECTED [None]
  - URTICARIA [None]
